FAERS Safety Report 15865294 (Version 1)
Quarter: 2019Q1

REPORT INFORMATION
  Report Type: Spontaneous
  Country: FR (occurrence: FR)
  Receive Date: 20190124
  Receipt Date: 20190124
  Transmission Date: 20190417
  Serious: Yes (Hospitalization)
  Sender: FDA-Public Use
  Company Number: FR-ELI_LILLY_AND_COMPANY-FR201901006346

PATIENT
  Age: 46 Year
  Sex: Male

DRUGS (5)
  1. VALIUM [Suspect]
     Active Substance: DIAZEPAM
     Indication: INTENTIONAL OVERDOSE
     Dosage: UNK UNK, UNKNOWN
     Route: 048
     Dates: start: 20181025, end: 20181025
  2. ZYPREXA [Suspect]
     Active Substance: OLANZAPINE
     Indication: INTENTIONAL OVERDOSE
     Dosage: UNK UNK, UNKNOWN
     Route: 048
     Dates: start: 20181025, end: 20181025
  3. BUPRENORPHINE. [Suspect]
     Active Substance: BUPRENORPHINE
     Indication: INTENTIONAL OVERDOSE
     Dosage: UNK UNK, UNKNOWN
     Route: 065
     Dates: start: 20181025, end: 20181025
  4. PAROXETINE. [Suspect]
     Active Substance: PAROXETINE
     Indication: INTENTIONAL OVERDOSE
     Dosage: UNK UNK, UNKNOWN
     Route: 048
     Dates: start: 20181025, end: 20181025
  5. TERCIAN [CYAMEMAZINE TARTRATE] [Suspect]
     Active Substance: CYAMEMAZINE
     Indication: INTENTIONAL OVERDOSE
     Dosage: UNK UNK, UNKNOWN
     Route: 048
     Dates: start: 20181025, end: 20181025

REACTIONS (7)
  - Mydriasis [Recovered/Resolved]
  - Rhabdomyolysis [Recovered/Resolved]
  - Urinary retention [Recovered/Resolved]
  - Hyponatraemia [Recovered/Resolved]
  - Poisoning deliberate [Recovered/Resolved]
  - Coma [Recovered/Resolved]
  - Intentional overdose [Recovered/Resolved]

NARRATIVE: CASE EVENT DATE: 20181025
